FAERS Safety Report 6340218-4 (Version None)
Quarter: 2009Q3

REPORT INFORMATION
  Report Type: 
  Country: None (occurrence: None)
  Receive Date: 20090902
  Receipt Date: 20090828
  Transmission Date: 20100115
  Serious: Yes (Congenital Anomaly)
  Sender: FDA-Public Use
  Company Number: 1000008535

PATIENT
  Sex: Male

DRUGS (1)
  1. CELEXA [Suspect]
     Dosage: TRANSPLACENTAL
     Route: 064
     Dates: end: 20060625

REACTIONS (4)
  - ANAL ATRESIA [None]
  - CONGENITAL ANOMALY [None]
  - MATERNAL DRUGS AFFECTING FOETUS [None]
  - MULTIPLE CONGENITAL ABNORMALITIES [None]
